FAERS Safety Report 7918617-6 (Version None)
Quarter: 2011Q4

REPORT INFORMATION
  Report Type: 
  Country: None (occurrence: None)
  Receive Date: 20111116
  Receipt Date: 20111108
  Transmission Date: 20120403
  Serious: Yes (Hospitalization, Other)
  Sender: FDA-Public Use
  Company Number: US-US-EMD SERONO, INC.-7094586

PATIENT
  Sex: Female

DRUGS (5)
  1. REBIF [Suspect]
     Route: 058
     Dates: start: 20110501
  2. LOSATAN HCTZ [Concomitant]
     Indication: HYPERTENSION
  3. BACLOFEN [Concomitant]
  4. REBIF [Suspect]
     Indication: MULTIPLE SCLEROSIS
     Route: 058
     Dates: start: 20081105, end: 20110501
  5. VESICARE [Concomitant]

REACTIONS (4)
  - CORONARY ARTERY DISEASE [None]
  - ARTERIAL REPAIR [None]
  - URINARY TRACT INFECTION [None]
  - DEVICE LEAKAGE [None]
